FAERS Safety Report 5938365-1 (Version None)
Quarter: 2008Q4

REPORT INFORMATION
  Report Type: 
  Country: None (occurrence: None)
  Receive Date: 20081103
  Receipt Date: 20081027
  Transmission Date: 20090506
  Serious: Yes (Other)
  Sender: FDA-Public Use
  Company Number: ES-BRISTOL-MYERS SQUIBB COMPANY-14386619

PATIENT
  Age: 43 Year
  Sex: Male

DRUGS (4)
  1. EFAVIRENZ [Suspect]
  2. ENTECAVIR [Suspect]
     Indication: LIVER DISORDER
  3. TENOFOVIR [Suspect]
  4. EMTRICITABINE [Suspect]

REACTIONS (2)
  - DRUG RESISTANCE [None]
  - RENAL TUBULAR DISORDER [None]
